FAERS Safety Report 6059577-5 (Version None)
Quarter: 2009Q1

REPORT INFORMATION
  Report Type: 
  Country: None (occurrence: None)
  Receive Date: 20090127
  Receipt Date: 20090127
  Transmission Date: 20090719
  Serious: Yes (Hospitalization)
  Sender: FDA-Public Use
  Company Number: None

PATIENT
  Age: 51 Year
  Sex: Male

DRUGS (3)
  1. ALEVE (CAPLET) [Suspect]
     Indication: OSTEOARTHRITIS
     Dosage: 200MG 1 TO 3 TIMES A DAY PO APPROX.1 YEAR
     Route: 048
  2. SIMVASTATIN [Concomitant]
  3. DOVONEX [Concomitant]

REACTIONS (5)
  - DUODENITIS [None]
  - DYSPNOEA [None]
  - FATIGUE [None]
  - GASTROINTESTINAL HAEMORRHAGE [None]
  - HAEMOGLOBIN DECREASED [None]
